FAERS Safety Report 10344496 (Version 1)
Quarter: 2014Q3

REPORT INFORMATION
  Report Type: Spontaneous
  Country: US (occurrence: None)
  Receive Date: 20140724
  Receipt Date: 20140724
  Transmission Date: 20150326
  Serious: Yes (Disabling, Other)
  Sender: FDA-Public Use
  Company Number: None

PATIENT
  Age: 53 Year
  Sex: Female
  Weight: 77.11 kg

DRUGS (1)
  1. DULOXETINE [Suspect]
     Active Substance: DULOXETINE
     Indication: FIBROMYALGIA
     Dosage: 1 CAPSULE TWICE A DAY  TWICE DAILY TAKEN BY MOUTH
     Route: 048
     Dates: start: 20140426, end: 20140723

REACTIONS (5)
  - Agitation [None]
  - Drug withdrawal syndrome [None]
  - Product substitution issue [None]
  - Feeling abnormal [None]
  - Dizziness [None]

NARRATIVE: CASE EVENT DATE: 20140723
